FAERS Safety Report 8603270-9 (Version None)
Quarter: 2012Q3

REPORT INFORMATION
  Report Type: 
  Country: None (occurrence: None)
  Receive Date: 20120817
  Receipt Date: 20120808
  Transmission Date: 20120928
  Serious: Yes (Disabling)
  Sender: FDA-Public Use
  Company Number: FR-ASTRAZENECA-2012SE56489

PATIENT
  Age: 15000 Day
  Sex: Male

DRUGS (13)
  1. NEXIUM [Suspect]
     Indication: PROPHYLAXIS AGAINST GASTROINTESTINAL ULCER
     Route: 048
     Dates: start: 20070925
  2. KEPPRA [Suspect]
     Indication: CONVULSION
     Route: 048
     Dates: start: 20070730
  3. CREON [Suspect]
     Indication: PANCREATIC INSUFFICIENCY
     Route: 048
     Dates: start: 20070925
  4. MOVIPREP [Suspect]
     Indication: CONSTIPATION
     Route: 048
     Dates: start: 20070925
  5. VALGANCICLOVIR [Suspect]
     Route: 048
     Dates: start: 20070924, end: 20071105
  6. OXACILLIN [Suspect]
     Indication: STAPHYLOCOCCAL INFECTION
     Route: 048
     Dates: start: 20070919, end: 20071107
  7. PAROXETINE HCL [Concomitant]
     Indication: DEPRESSION
  8. LOVENOX [Suspect]
     Route: 058
     Dates: start: 20070925
  9. PREDNISOLONE [Suspect]
     Indication: LUNG TRANSPLANT
     Route: 048
     Dates: start: 20070924
  10. ATARAX [Concomitant]
     Indication: ANXIETY
  11. ZOLPIDEM TARTRATE [Concomitant]
     Indication: INSOMNIA
  12. NEORAL [Suspect]
     Indication: LUNG TRANSPLANT
     Route: 048
     Dates: start: 20070701, end: 20071002
  13. COLY-MYCIN S OPHTHALMIC DROPS [Suspect]
     Indication: CYSTIC FIBROSIS
     Route: 045
     Dates: start: 20070925

REACTIONS (1)
  - OPTIC NEURITIS [None]
